FAERS Safety Report 10004729 (Version 2)
Quarter: 2014Q2

REPORT INFORMATION
  Report Type: Spontaneous
  Country: AU (occurrence: AU)
  Receive Date: 20140312
  Receipt Date: 20140519
  Transmission Date: 20141212
  Serious: Yes (Hospitalization)
  Sender: FDA-Public Use
  Company Number: AU-BAXTER-2014BAX012457

PATIENT
  Age: 25 Year
  Sex: Female

DRUGS (7)
  1. KIOVIG NORMAL IMMUNOGLOBULIN (HUMAN) 20G/200ML FOR INTRAVENOUS USE INJ [Suspect]
     Indication: GUILLAIN-BARRE SYNDROME
     Route: 042
     Dates: start: 20130319, end: 20130323
  2. FLUDROCORTISONE [Concomitant]
     Indication: AUTONOMIC NEUROPATHY
     Route: 048
  3. MIDODRINE [Concomitant]
     Indication: AUTONOMIC NEUROPATHY
     Route: 048
  4. MIDODRINE [Concomitant]
     Route: 048
  5. NOVORAPID [Concomitant]
     Indication: TYPE 1 DIABETES MELLITUS
     Dosage: 4 UNITS
     Route: 058
  6. GLARGINE INSULIN [Concomitant]
     Indication: TYPE 1 DIABETES MELLITUS
     Dosage: 24 UNITS
     Route: 058
  7. GLARGINE INSULIN [Concomitant]
     Dosage: 10 UNITS
     Route: 058

REACTIONS (3)
  - Headache [Recovered/Resolved]
  - Visual impairment [Recovered/Resolved]
  - Papilloedema [Recovered/Resolved]
